FAERS Safety Report 23848963 (Version 1)
Quarter: 2024Q2

REPORT INFORMATION
  Report Type: Spontaneous
  Country: US (occurrence: US)
  Receive Date: 20240513
  Receipt Date: 20240513
  Transmission Date: 20240716
  Serious: No
  Sender: FDA-Public Use
  Company Number: US-Merck Healthcare KGaA-2024025256

PATIENT
  Age: 65 Year
  Sex: Female
  Weight: 78 kg

DRUGS (1)
  1. MAVENCLAD [Suspect]
     Active Substance: CLADRIBINE
     Indication: Relapsing-remitting multiple sclerosis
     Dosage: YEAR ONE MONTH ONE THERAPY: 20 MG ON DAY 1 TO 2 AND 10 MG ON DAY 3 TO 5
     Route: 048
     Dates: start: 20240411

REACTIONS (2)
  - Gait disturbance [Unknown]
  - Muscle strain [Recovering/Resolving]

NARRATIVE: CASE EVENT DATE: 20240414
